FAERS Safety Report 7736179-3 (Version None)
Quarter: 2011Q3

REPORT INFORMATION
  Report Type: 
  Country: None (occurrence: None)
  Receive Date: 20110817
  Receipt Date: 20110321
  Transmission Date: 20111222
  Serious: Yes (Hospitalization, Other)
  Sender: FDA-Public Use
  Company Number: 20097207

PATIENT
  Sex: Male

DRUGS (1)
  1. LIORESAL [Suspect]
     Indication: MUSCLE SPASTICITY
     Dosage: 1360 MCG, DAILY, INTRATHECAL
     Route: 037

REACTIONS (10)
  - NAUSEA [None]
  - RESPIRATORY DISORDER [None]
  - RESPIRATORY DISTRESS [None]
  - HOSPITALISATION [None]
  - PYREXIA [None]
  - DRUG WITHDRAWAL SYNDROME [None]
  - HYPERTENSION [None]
  - IMPLANT SITE INFECTION [None]
  - THERAPY CESSATION [None]
  - MUSCLE SPASTICITY [None]
